FAERS Safety Report 9775404 (Version 1)
Quarter: 2013Q4

REPORT INFORMATION
  Report Type: Spontaneous
  Country: US (occurrence: US)
  Receive Date: 20131220
  Receipt Date: 20131220
  Transmission Date: 20140711
  Serious: No
  Sender: FDA-Public Use
  Company Number: US-GALDERMA-US13003362

PATIENT
  Age: 61 Year
  Sex: Male

DRUGS (9)
  1. MIRVASO (BRIMONIDINE) TOPICAL GEL, 0.33% [Suspect]
     Indication: ROSACEA
     Dosage: 0.33%
     Route: 061
     Dates: start: 20131019, end: 20131022
  2. ORACEA (DOXYCYCLINE, USP) CAPSULES 40 MG [Concomitant]
     Indication: ROSACEA
     Dosage: 40 MG
     Route: 048
     Dates: start: 2006
  3. CETAPHIL GENTLE SKIN CLEANSER [Concomitant]
     Indication: THERAPEUTIC SKIN CARE TOPICAL
     Route: 061
  4. ACZONE (DAPSONE) GEL 5% [Concomitant]
     Indication: SEBORRHOEA
     Dosage: 5%
     Route: 061
  5. ACZONE (DAPSONE) GEL 5% [Concomitant]
     Indication: ACNE
  6. CLINIQUE MOISTURIZER FOR MEN [Concomitant]
     Indication: DRY SKIN PROPHYLAXIS
     Route: 061
  7. RETIN A (TRETINOIN)  0.1% [Concomitant]
     Indication: ACNE
     Dosage: 0.1%
     Route: 061
  8. RETIN A (TRETINOIN)  0.1% [Concomitant]
     Indication: ACNE
     Dosage: 0.4%
     Route: 061
  9. DOVE FRAGRANCE FREE SOAP [Concomitant]
     Indication: THERAPEUTIC SKIN CARE TOPICAL
     Route: 061

REACTIONS (5)
  - Condition aggravated [Recovering/Resolving]
  - Feeling hot [Recovered/Resolved]
  - Erythema [Recovering/Resolving]
  - Flushing [Recovered/Resolved]
  - Skin burning sensation [Recovered/Resolved]
